FAERS Safety Report 5448413-3 (Version None)
Quarter: 2007Q3

REPORT INFORMATION
  Report Type: 
  Country: None (occurrence: None)
  Receive Date: 20070906
  Receipt Date: 20070828
  Transmission Date: 20080115
  Serious: Yes (Hospitalization)
  Sender: FDA-Public Use
  Company Number: TPA2007A01813

PATIENT
  Age: 60 Year
  Sex: Male
  Weight: 110.6777 kg

DRUGS (4)
  1. ACTOPLUS MET [Suspect]
     Indication: TYPE 2 DIABETES MELLITUS
     Dosage: 15/500, BID, PER ORAL
     Route: 048
     Dates: start: 20060501
  2. BYETTA (DRUG USED IN DIABETES) [Concomitant]
  3. HYZAAR [Concomitant]
  4. CRESTOR [Concomitant]

REACTIONS (1)
  - MYOCARDIAL INFARCTION [None]
